FAERS Safety Report 24382391 (Version 1)
Quarter: 2024Q4

REPORT INFORMATION
  Report Type: Spontaneous
  Country: IE (occurrence: IE)
  Receive Date: 20241001
  Receipt Date: 20241001
  Transmission Date: 20250115
  Serious: Yes (Other)
  Sender: STRIDES
  Company Number: IE-STRIDES ARCOLAB LIMITED-2024SP012522

PATIENT
  Sex: Male

DRUGS (9)
  1. LETROZOLE [Suspect]
     Active Substance: LETROZOLE
     Indication: Product used for unknown indication
     Dosage: UNK
     Route: 064
  2. NALTREXONE [Suspect]
     Active Substance: NALTREXONE
     Indication: Product used for unknown indication
     Dosage: UNK
     Route: 064
  3. NALTREXONE [Suspect]
     Active Substance: NALTREXONE
     Dosage: UNK, (THE PATIENT^S MOTHER RECEIVED 4.5 MILLIGRAM, NIGHTLY)
     Route: 064
  4. PRASTERONE [Suspect]
     Active Substance: PRASTERONE
     Indication: Product used for unknown indication
     Dosage: UNK
     Route: 064
  5. PRASTERONE [Suspect]
     Active Substance: PRASTERONE
     Dosage: UNK, (THE PATIENT^S MOTHER RECEIVED 20MG ONCE DAILY)
     Route: 064
  6. PROGESTERONE [Suspect]
     Active Substance: PROGESTERONE
     Indication: Product used for unknown indication
     Dosage: UNK, (THE PATIENT^S MOTHER RECEIVED 400MG TWICE DAILY PESSARY)
     Route: 064
  7. CLOMIPHENE [Suspect]
     Active Substance: CLOMIPHENE
     Indication: Product used for unknown indication
     Dosage: UNK, (THE PATIENT^S MOTHER RECEIVED 50MG/DAY)
     Route: 064
  8. GONADOTROPHIN, CHORIONIC [Suspect]
     Active Substance: GONADOTROPHIN, CHORIONIC
     Indication: Product used for unknown indication
     Dosage: UNK, (THE PATIENT^S MOTHER RECEIVED 1000 IU)
     Route: 064
  9. GONADOTROPHIN, CHORIONIC [Suspect]
     Active Substance: GONADOTROPHIN, CHORIONIC
     Dosage: UNK, (THE PATIENT^S MOTHER RECEIVED 2000 IU)
     Route: 064

REACTIONS (2)
  - Premature baby [Unknown]
  - Foetal exposure during pregnancy [Unknown]
